FAERS Safety Report 5104128-2 (Version None)
Quarter: 2006Q3

REPORT INFORMATION
  Report Type: 
  Country: None (occurrence: None)
  Receive Date: 20060911
  Receipt Date: 20060828
  Transmission Date: 20061208
  Serious: No
  Sender: FDA-Public Use
  Company Number: 2006-147234-NL

PATIENT
  Sex: Female

DRUGS (5)
  1. MIRTAZAPINE [Suspect]
     Indication: SLEEP DISORDER
     Dosage: 30 MG ORAL
     Route: 048
     Dates: start: 20000701
  2. ASCORBIC ACID [Concomitant]
  3. CO-PROXAMOL [Concomitant]
  4. PYRIDOSTIGMINE BROMIDE [Concomitant]
  5. NIMODIPINE [Concomitant]

REACTIONS (2)
  - MALAISE [None]
  - SLEEP DISORDER [None]
